FAERS Safety Report 5700830-X (Version None)
Quarter: 2008Q2

REPORT INFORMATION
  Report Type: 
  Country: None (occurrence: None)
  Receive Date: 20080410
  Receipt Date: 20080331
  Transmission Date: 20081010
  Serious: Yes (Hospitalization)
  Sender: FDA-Public Use
  Company Number: AT-AMGEN-UK262786

PATIENT
  Sex: Female

DRUGS (14)
  1. PANITUMUMAB [Suspect]
     Indication: COLORECTAL CANCER
     Route: 041
     Dates: start: 20071120, end: 20071228
  2. IRINOTECAN HCL [Concomitant]
     Dates: start: 20071120
  3. LEUCOVORIN CALCIUM [Concomitant]
     Dates: start: 20071120
  4. FLUOROURACIL [Concomitant]
     Dates: start: 20071120
  5. DIOVAN HCT [Concomitant]
  6. EUTHYROX [Concomitant]
  7. SELOKEN - SLOW RELEASE [Concomitant]
  8. TRAMADOL - SLOW RELEASE [Concomitant]
  9. MAGNESIUM VERLA DRAGEES [Concomitant]
  10. TRAMADOL HCL [Concomitant]
  11. FLUOXETINE [Concomitant]
  12. PANTOPRAZOLE SODIUM [Concomitant]
  13. MOTILIUM [Concomitant]
  14. LOVENOX [Concomitant]
     Dates: start: 20070201

REACTIONS (4)
  - DISEASE PROGRESSION [None]
  - PORTAL VEIN THROMBOSIS [None]
  - PULMONARY EMBOLISM [None]
  - THROMBOSIS [None]
